FAERS Safety Report 7854193-4 (Version None)
Quarter: 2011Q4

REPORT INFORMATION
  Report Type: 
  Country: None (occurrence: None)
  Receive Date: 20111026
  Receipt Date: 20111025
  Transmission Date: 20120403
  Serious: Yes (Death)
  Sender: FDA-Public Use
  Company Number: BR-B.I. PHARMACEUTICALS,INC./RIDGEFIELD-2011-BR-01169BR

PATIENT
  Age: 86 Year
  Sex: Male

DRUGS (1)
  1. MICARDIS [Suspect]
     Dosage: 40 MG
     Dates: start: 20110826, end: 20111018

REACTIONS (1)
  - CARDIAC ARREST [None]
